FAERS Safety Report 7819036-3 (Version None)
Quarter: 2011Q4

REPORT INFORMATION
  Report Type: 
  Country: None (occurrence: None)
  Receive Date: 20111012
  Receipt Date: 20110927
  Transmission Date: 20120403
  Serious: Yes (Death)
  Sender: FDA-Public Use
  Company Number: FK201102117

PATIENT
  Sex: Female

DRUGS (4)
  1. PACLITAXEL [Suspect]
     Indication: OVARIAN CANCER METASTATIC
  2. CARBOPLATIN [Suspect]
     Indication: OVARIAN CANCER METASTATIC
     Dosage: AUC5
  3. CISPLATIN [Suspect]
     Indication: OVARIAN CANCER METASTATIC
     Dosage: 60 MG/M2
  4. IRINOTECAN HCL [Suspect]
     Indication: OVARIAN CANCER METASTATIC

REACTIONS (15)
  - DRUG ERUPTION [None]
  - HYPONATRAEMIA [None]
  - TRANSIENT ISCHAEMIC ATTACK [None]
  - GENERAL PHYSICAL HEALTH DETERIORATION [None]
  - URINE SODIUM INCREASED [None]
  - CONVULSION [None]
  - OVARIAN CANCER METASTATIC [None]
  - ATAXIA [None]
  - INAPPROPRIATE ANTIDIURETIC HORMONE SECRETION [None]
  - HEADACHE [None]
  - MOOD ALTERED [None]
  - LOSS OF CONSCIOUSNESS [None]
  - NEOPLASM PROGRESSION [None]
  - BLOOD OSMOLARITY DECREASED [None]
  - METASTASES TO MENINGES [None]
